FAERS Safety Report 21571630 (Version 1)
Quarter: 2022Q4

REPORT INFORMATION
  Report Type: Spontaneous
  Country: US (occurrence: US)
  Receive Date: 20221109
  Receipt Date: 20221109
  Transmission Date: 20230113
  Serious: Yes (Other)
  Sender: FDA-Public Use
  Company Number: US-NALPROPION PHARMACEUTICALS INC.-US-2022CUR022732

PATIENT
  Sex: Female

DRUGS (1)
  1. CONTRAVE [Suspect]
     Active Substance: BUPROPION HYDROCHLORIDE\NALTREXONE HYDROCHLORIDE
     Indication: Weight control
     Dosage: STRENGTH 8/90 MG, UNKNOWN DOSE AND FREQUENCY
     Route: 048
     Dates: start: 202208, end: 2022

REACTIONS (8)
  - Hand fracture [Unknown]
  - Fall [Unknown]
  - Dysarthria [Not Recovered/Not Resolved]
  - Feeling drunk [Not Recovered/Not Resolved]
  - Sleep disorder [Unknown]
  - Memory impairment [Not Recovered/Not Resolved]
  - Dry mouth [Unknown]
  - Balance disorder [Unknown]

NARRATIVE: CASE EVENT DATE: 20220101
